FAERS Safety Report 19432275 (Version 1)
Quarter: 2021Q2

REPORT INFORMATION
  Report Type: Spontaneous
  Country: US (occurrence: US)
  Receive Date: 20210617
  Receipt Date: 20210617
  Transmission Date: 20210717
  Serious: No
  Sender: FDA-Public Use
  Company Number: US-CATALYST PHARMACEUTICALS, INC-2021CAT00113

PATIENT
  Age: 57 Year
  Sex: Female
  Weight: 56.69 kg

DRUGS (7)
  1. COPPER [Concomitant]
     Active Substance: COPPER
     Dosage: UNK, 1X/DAY
  2. ^OIOPHYRONINE^ (PRESUMED LIOTHYRONINE) [Concomitant]
     Dosage: 10 ?G, 1X/DAY
  3. CALCIUM WITH MULTIVITAMIN [Concomitant]
     Dosage: UNK, 1X/DAY
  4. PREDNISONE. [Concomitant]
     Active Substance: PREDNISONE
     Indication: MYASTHENIC SYNDROME
     Dosage: 7.5 MG AND THEY ARE LOWERING THIS
  5. LEVOTHYROXINE. [Concomitant]
     Active Substance: LEVOTHYROXINE
     Dosage: 0.075 MG, 1X/DAY
  6. IMURAN [Concomitant]
     Active Substance: AZATHIOPRINE
     Indication: MYASTHENIC SYNDROME
  7. FIRDAPSE [Suspect]
     Active Substance: AMIFAMPRIDINE PHOSPHATE
     Indication: MYASTHENIC SYNDROME
     Dosage: 10 MG, 3X/DAY
     Route: 048
     Dates: start: 20210202

REACTIONS (1)
  - Paraesthesia oral [Not Recovered/Not Resolved]

NARRATIVE: CASE EVENT DATE: 20210202
